FAERS Safety Report 9595356 (Version 1)
Quarter: 2013Q3

REPORT INFORMATION
  Report Type: Spontaneous
  Country: US (occurrence: None)
  Receive Date: 20130927
  Receipt Date: 20130927
  Transmission Date: 20140515
  Serious: Yes (Hospitalization)
  Sender: FDA-Public Use
  Company Number: CABO-13002830

PATIENT
  Age: 16 Year
  Sex: Female

DRUGS (7)
  1. COMETRIQ (CABOZANTINIB) CAPSULE [Suspect]
     Indication: BONE CANCER
     Dosage: 80 MG, QD, ORAL
     Route: 048
     Dates: start: 20130514, end: 201305
  2. AFINITOR (EVEROLIMUS) [Suspect]
     Indication: BONE CANCER
     Dosage: UNK
     Dates: start: 20130521
  3. LORAZEPAM (LORAZEPAM) [Concomitant]
  4. LEXAPRO (ESCITALOPRAM OXALATE) [Concomitant]
  5. CELEBREX (CELECOXIB) [Concomitant]
  6. CALCIUM (CALCIUM CARBONATE) [Concomitant]
  7. VITAMIN D (COLECALCIFEROL) [Concomitant]

REACTIONS (3)
  - Diarrhoea [None]
  - Dehydration [None]
  - Platelet count decreased [None]
